FAERS Safety Report 21038816 (Version 1)
Quarter: 2022Q3

REPORT INFORMATION
  Report Type: Report from Study
  Country: CO (occurrence: CO)
  Receive Date: 20220704
  Receipt Date: 20220704
  Transmission Date: 20221027
  Serious: Yes (Death, Other)
  Sender: FDA-Public Use
  Company Number: CO-BAYER-2022A091171

PATIENT
  Age: 88 Year
  Sex: Male

DRUGS (1)
  1. EYLEA [Suspect]
     Active Substance: AFLIBERCEPT
     Indication: Neovascular age-related macular degeneration
     Dosage: SOLUTION FOR INJECTION
     Dates: start: 20211020

REACTIONS (1)
  - Death [Fatal]

NARRATIVE: CASE EVENT DATE: 20220608
